FAERS Safety Report 6565151-4 (Version None)
Quarter: 2010Q1

REPORT INFORMATION
  Report Type: 
  Country: None (occurrence: None)
  Receive Date: 20100201
  Receipt Date: 20100120
  Transmission Date: 20100710
  Serious: Yes (Hospitalization)
  Sender: FDA-Public Use
  Company Number: B0625315A

PATIENT
  Age: 40 Year
  Sex: Female

DRUGS (1)
  1. MALARONE [Suspect]
     Indication: MALARIA PROPHYLAXIS
     Route: 065

REACTIONS (12)
  - DRUG HYPERSENSITIVITY [None]
  - DYSPNOEA [None]
  - EOSINOPHILIA [None]
  - HYPERAESTHESIA [None]
  - HYPERSENSITIVITY [None]
  - HYPOXIA [None]
  - INTERSTITIAL LUNG DISEASE [None]
  - LUNG DISORDER [None]
  - PYREXIA [None]
  - RALES [None]
  - RASH MACULO-PAPULAR [None]
  - SKIN LESION [None]
